FAERS Safety Report 7698808-2 (Version None)
Quarter: 2011Q3

REPORT INFORMATION
  Report Type: 
  Country: None (occurrence: None)
  Receive Date: 20110819
  Receipt Date: 20110817
  Transmission Date: 20111222
  Serious: Yes (Death, Hospitalization, Other)
  Sender: FDA-Public Use
  Company Number: US-AMGEN-USASP2011009909

PATIENT
  Age: 70 Year
  Sex: Female

DRUGS (7)
  1. ANTI-D                             /00815801/ [Concomitant]
  2. RITUXAN [Concomitant]
  3. PREDNISONE [Concomitant]
  4. NPLATE [Suspect]
     Indication: IDIOPATHIC THROMBOCYTOPENIC PURPURA
     Dosage: 330 A?G, QWK
     Dates: start: 20100911, end: 20110222
  5. DANAZOL [Concomitant]
  6. IMMUNOGLOBULINS [Concomitant]
  7. PROMACTA [Concomitant]

REACTIONS (5)
  - DEATH [None]
  - RENAL FAILURE ACUTE [None]
  - THROMBOCYTOPENIA [None]
  - DRUG INEFFECTIVE [None]
  - MYELOFIBROSIS [None]
